FAERS Safety Report 13943559 (Version 1)
Quarter: 2017Q3

REPORT INFORMATION
  Report Type: Spontaneous
  Country: US (occurrence: US)
  Receive Date: 20170907
  Receipt Date: 20170907
  Transmission Date: 20171128
  Serious: No
  Sender: FDA-Public Use
  Company Number: US-PFIZER INC-2017384839

PATIENT
  Age: 61 Year
  Sex: Female
  Weight: 60.78 kg

DRUGS (1)
  1. ESTRING [Suspect]
     Active Substance: ESTRADIOL
     Indication: ATROPHIC VULVOVAGINITIS
     Dosage: 2 MG, EVERY 3 MONTHS (EVERY 90 DAYS)
     Route: 067
     Dates: start: 20170828, end: 20170901

REACTIONS (3)
  - Vaginal haemorrhage [Recovering/Resolving]
  - Vulvovaginal pain [Recovering/Resolving]
  - Product quality issue [Recovering/Resolving]

NARRATIVE: CASE EVENT DATE: 20170901
